FAERS Safety Report 12942833 (Version 1)
Quarter: 2016Q4

REPORT INFORMATION
  Report Type: Spontaneous
  Country: GB (occurrence: GB)
  Receive Date: 20161115
  Receipt Date: 20161115
  Transmission Date: 20170207
  Serious: Yes (Disabling)
  Sender: FDA-Public Use
  Company Number: GB-SA-2016SA201888

PATIENT
  Sex: Male
  Weight: 78.92 kg

DRUGS (13)
  1. CYTAMEN [Concomitant]
  2. LISINOPRIL. [Concomitant]
     Active Substance: LISINOPRIL
  3. LYRICA [Concomitant]
     Active Substance: PREGABALIN
  4. OPATANOL [Concomitant]
     Active Substance: OLOPATADINE
  5. FEXOFENADINE [Concomitant]
     Active Substance: FEXOFENADINE\FEXOFENADINE HYDROCHLORIDE
  6. TERIFLUNOMIDE [Suspect]
     Active Substance: TERIFLUNOMIDE
     Indication: MULTIPLE SCLEROSIS RELAPSE
     Route: 048
     Dates: start: 20151009
  7. BIOTENE DRY MOUTH [Concomitant]
  8. ANTIFUNGALS [Concomitant]
     Active Substance: UNSPECIFIED INGREDIENT
     Dosage: NAIL PAINT
  9. EURAX [Concomitant]
     Active Substance: CROTAMITON
  10. OMEPRAZOLE. [Concomitant]
     Active Substance: OMEPRAZOLE
  11. BACLOFEN. [Concomitant]
     Active Substance: BACLOFEN
  12. CITALOPRAM [Concomitant]
     Active Substance: CITALOPRAM HYDROBROMIDE
  13. MODAFINIL. [Concomitant]
     Active Substance: MODAFINIL

REACTIONS (16)
  - Dental caries [Unknown]
  - Infection susceptibility increased [Not Recovered/Not Resolved]
  - Onychomycosis [Recovered/Resolved]
  - Eye infection bacterial [Recovering/Resolving]
  - Myopia [Unknown]
  - Impaired healing [Unknown]
  - Arthralgia [Not Recovered/Not Resolved]
  - Vision blurred [Not Recovered/Not Resolved]
  - Rash [Unknown]
  - Hypoaesthesia [Not Recovered/Not Resolved]
  - Diarrhoea [Not Recovered/Not Resolved]
  - Tooth disorder [Not Recovered/Not Resolved]
  - Skin haemorrhage [Unknown]
  - Flatulence [Unknown]
  - Grip strength decreased [Unknown]
  - Scab [Unknown]

NARRATIVE: CASE EVENT DATE: 20151201
